FAERS Safety Report 7420956-2 (Version None)
Quarter: 2011Q2

REPORT INFORMATION
  Report Type: 
  Country: None (occurrence: None)
  Receive Date: 20110418
  Receipt Date: 20110408
  Transmission Date: 20111010
  Serious: Yes (Hospitalization)
  Sender: FDA-Public Use
  Company Number: JP-ROCHE-770655

PATIENT
  Sex: Male

DRUGS (3)
  1. ACTEMRA [Suspect]
     Route: 041
     Dates: start: 20090518
  2. ACTEMRA [Suspect]
     Dosage: IT ADMINISTERS IT BY THE INTERVAL FOR 1-2 WEEKS.
     Route: 041
     Dates: start: 20080922, end: 20090506
  3. ACTEMRA [Suspect]
     Indication: JUVENILE ARTHRITIS
     Route: 041
     Dates: start: 20080603, end: 20080905

REACTIONS (1)
  - MYOCARDITIS [None]
